FAERS Safety Report 7768748-9 (Version None)
Quarter: 2011Q3

REPORT INFORMATION
  Report Type: 
  Country: None (occurrence: None)
  Receive Date: 20110922
  Receipt Date: 20110420
  Transmission Date: 20111222
  Serious: No
  Sender: FDA-Public Use
  Company Number: US-ASTRAZENECA-2011SE23449

PATIENT
  Age: 58 Year
  Sex: Female

DRUGS (6)
  1. SYMBICORT [Concomitant]
     Route: 055
  2. CLONAZEPAM [Concomitant]
     Route: 065
  3. SEROQUEL [Suspect]
     Indication: BIPOLAR DISORDER
     Route: 048
     Dates: start: 20090101
  4. AMBIEN [Concomitant]
     Route: 065
  5. REMERON [Concomitant]
     Route: 065
  6. CHANTIX [Concomitant]
     Route: 065

REACTIONS (4)
  - DEPRESSION [None]
  - INSOMNIA [None]
  - WEIGHT INCREASED [None]
  - CHRONIC OBSTRUCTIVE PULMONARY DISEASE [None]
